FAERS Safety Report 24291260 (Version 1)
Quarter: 2024Q3

REPORT INFORMATION
  Report Type: Spontaneous
  Country: US (occurrence: None)
  Receive Date: 20240906
  Receipt Date: 20240906
  Transmission Date: 20241016
  Serious: No
  Sender: DOMPE FARMACEUTICI
  Company Number: US-FARMAPROD-202308-2395

PATIENT
  Sex: Male

DRUGS (13)
  1. OXERVATE [Suspect]
     Active Substance: CENEGERMIN-BKBJ
     Indication: Neurotrophic keratopathy
     Route: 047
     Dates: start: 20230731, end: 20230926
  2. OXERVATE [Suspect]
     Active Substance: CENEGERMIN-BKBJ
     Indication: Hypoaesthesia eye
  3. METAMUCIL [Concomitant]
     Active Substance: PLANTAGO SEED
  4. VITAMIN C [Concomitant]
     Active Substance: ASCORBIC ACID
  5. ARTIFICIAL TEARS [Concomitant]
  6. TIMOLOL MALEATE [Concomitant]
     Active Substance: TIMOLOL MALEATE
  7. STELARA [Concomitant]
     Active Substance: USTEKINUMAB
     Dosage: 45 MG / 0.5 ML SYRINGE
  8. AMLODIPINE BESYLATE [Concomitant]
     Active Substance: AMLODIPINE BESYLATE
  9. ELIQUIS [Concomitant]
     Active Substance: APIXABAN
  10. SIMVASTATIN [Concomitant]
     Active Substance: SIMVASTATIN
  11. SERTRALINE HYDROCHLORIDE [Concomitant]
     Active Substance: SERTRALINE HYDROCHLORIDE
  12. LANSOPRAZOLE [Concomitant]
     Active Substance: LANSOPRAZOLE
  13. ZEPOSIA [Concomitant]
     Active Substance: OZANIMOD HYDROCHLORIDE

REACTIONS (4)
  - Abnormal sensation in eye [Not Recovered/Not Resolved]
  - Colitis [Unknown]
  - Drug ineffective [Not Recovered/Not Resolved]
  - Ocular discomfort [Not Recovered/Not Resolved]
